FAERS Safety Report 16672285 (Version 1)
Quarter: 2019Q3

REPORT INFORMATION
  Report Type: Report from Study
  Country: CN (occurrence: CN)
  Receive Date: 20190806
  Receipt Date: 20190806
  Transmission Date: 20191004
  Serious: Yes (Other)
  Sender: FDA-Public Use
  Company Number: CN-ELI_LILLY_AND_COMPANY-CN201906014318

PATIENT
  Age: 53 Year
  Sex: Female

DRUGS (3)
  1. INSULIN, LISPRO [Suspect]
     Active Substance: INSULIN LISPRO
     Indication: DIABETES MELLITUS
     Dosage: 28 U, EACH MORNING
     Route: 058
     Dates: start: 201806
  2. INSULIN, LISPRO [Suspect]
     Active Substance: INSULIN LISPRO
     Dosage: 28 U, EACH EVENING (AT NIGHT)
     Route: 058
     Dates: start: 201806
  3. INSULIN, LISPRO [Suspect]
     Active Substance: INSULIN LISPRO
     Dosage: 16 U, DAILY (AT NOON)
     Route: 058
     Dates: start: 201806

REACTIONS (6)
  - Confusional state [Unknown]
  - Blood glucose increased [Unknown]
  - Dizziness [Unknown]
  - Body fat disorder [Unknown]
  - Blood glucose decreased [Unknown]
  - Discomfort [Unknown]
